FAERS Safety Report 4645033-5 (Version None)
Quarter: 2005Q2

REPORT INFORMATION
  Report Type: 
  Country: None (occurrence: None)
  Receive Date: 20050426
  Receipt Date: 20050208
  Transmission Date: 20051028
  Serious: Yes (Hospitalization)
  Sender: FDA-Public Use
  Company Number: FR-ROCHE-395126

PATIENT
  Age: 45 Year
  Sex: Male
  Weight: 56 kg

DRUGS (6)
  1. ROVALCYTE [Suspect]
     Indication: ANTIVIRAL PROPHYLAXIS
     Route: 048
     Dates: start: 20040413, end: 20040629
  2. BACTRIM [Concomitant]
     Indication: INFECTION PROPHYLAXIS
     Dosage: TREATMENT WAS DISCONTINUED ON 24 JUNE 2004 AND RE-INITIATED ON 02 JULY 2004.
     Route: 065
  3. CELLCEPT [Concomitant]
     Indication: RENAL TRANSPLANT
     Dosage: TREATMENT WAS DISCONTINUED AND RE-INITIATED ON 02 JULY 2004.
     Route: 065
  4. PROGRAF [Concomitant]
  5. CORTANCYL [Concomitant]
  6. MOPRAL [Concomitant]

REACTIONS (1)
  - AGRANULOCYTOSIS [None]
